FAERS Safety Report 5583065-3 (Version None)
Quarter: 2008Q1

REPORT INFORMATION
  Report Type: 
  Country: None (occurrence: None)
  Receive Date: 20080107
  Receipt Date: 20071227
  Transmission Date: 20080703
  Serious: Yes (Life-Threatening, Other)
  Sender: FDA-Public Use
  Company Number: B0500824A

PATIENT
  Age: 56 Year
  Sex: Male

DRUGS (1)
  1. CEFTAZIDIME [Suspect]
     Indication: BRONCHITIS CHRONIC
     Dosage: 2G SINGLE DOSE
     Route: 042

REACTIONS (8)
  - ANAPHYLACTIC SHOCK [None]
  - BLOOD PRESSURE IMMEASURABLE [None]
  - CHEST PAIN [None]
  - CHOKING SENSATION [None]
  - DIZZINESS [None]
  - FOAMING AT MOUTH [None]
  - HYPOAESTHESIA [None]
  - PULSE ABSENT [None]
